FAERS Safety Report 8580593-3 (Version None)
Quarter: 2012Q3

REPORT INFORMATION
  Report Type: 
  Country: None (occurrence: None)
  Receive Date: 20120809
  Receipt Date: 20120806
  Transmission Date: 20120928
  Serious: Yes (Other)
  Sender: FDA-Public Use
  Company Number: US-AMGEN-USASP2012049206

PATIENT
  Age: 78 Year
  Sex: Male

DRUGS (3)
  1. PROLIA [Suspect]
     Indication: BONE LOSS
  2. ABIRATERONE [Concomitant]
     Dosage: UNK
  3. DOCETAXEL [Concomitant]

REACTIONS (1)
  - PROSTATE CANCER METASTATIC [None]
